APPROVED DRUG PRODUCT: SOTALOL HYDROCHLORIDE
Active Ingredient: SOTALOL HYDROCHLORIDE
Strength: 160MG
Dosage Form/Route: TABLET;ORAL
Application: A075663 | Product #003
Applicant: IMPAX PHARMACEUTICALS
Approved: Nov 7, 2000 | RLD: No | RS: No | Type: DISCN